FAERS Safety Report 9590205 (Version 1)
Quarter: 2013Q4

REPORT INFORMATION
  Report Type: Spontaneous
  Country: US (occurrence: US)
  Receive Date: 20131003
  Receipt Date: 20131003
  Transmission Date: 20140711
  Serious: No
  Sender: FDA-Public Use
  Company Number: US-AMGEN-USASP2012075319

PATIENT
  Age: 51 Year
  Sex: Male
  Weight: 106.58 kg

DRUGS (6)
  1. ENBREL [Suspect]
     Indication: RHEUMATOID ARTHRITIS
     Dosage: 50 MG, QWK
     Route: 048
  2. HUMIRA [Concomitant]
     Dosage: UNK
     Dates: start: 201208
  3. ORENCIA [Concomitant]
     Dosage: 125 MG/ML, UNK
     Route: 058
  4. FOCALIN [Concomitant]
     Dosage: 5 MG, UNK
     Route: 048
  5. METOPROLOL TARTATE HEXAL [Concomitant]
     Dosage: 100 MG, UNK
     Route: 048
  6. HYDROCODONE/APAP [Concomitant]
     Dosage: UNK, 10-300 MG
     Route: 048

REACTIONS (1)
  - Therapeutic response decreased [Unknown]
